FAERS Safety Report 25602460 (Version 1)
Quarter: 2025Q3

REPORT INFORMATION
  Report Type: Spontaneous
  Country: US (occurrence: US)
  Receive Date: 20250724
  Receipt Date: 20250724
  Transmission Date: 20251020
  Serious: Yes (Death)
  Sender: MERCK SHARP & DOHME LLC
  Company Number: US-009507513-2310703

PATIENT
  Age: 56 Year
  Sex: Female

DRUGS (1)
  1. KEYTRUDA [Suspect]
     Active Substance: PEMBROLIZUMAB
     Indication: Product used for unknown indication
     Dates: start: 202410, end: 202411

REACTIONS (2)
  - Malignant neoplasm progression [Fatal]
  - Platelet disorder [Unknown]

NARRATIVE: CASE EVENT DATE: 20240101
